FAERS Safety Report 10562576 (Version 6)
Quarter: 2016Q3

REPORT INFORMATION
  Report Type: Spontaneous
  Country: US (occurrence: US)
  Receive Date: 20141104
  Receipt Date: 20160818
  Transmission Date: 20161109
  Serious: Yes (Hospitalization, Disabling, Other)
  Sender: FDA-Public Use
  Company Number: US-009507513-1411USA000607

PATIENT
  Sex: Female

DRUGS (3)
  1. FOSAMAX [Suspect]
     Active Substance: ALENDRONATE SODIUM
     Indication: OSTEOPOROSIS
     Dosage: 70 MG, UNKNOWN
     Route: 048
     Dates: start: 2005, end: 2009
  2. FOSAMAX [Suspect]
     Active Substance: ALENDRONATE SODIUM
     Dosage: 70 MG, EVERY SATURDAY
     Route: 048
     Dates: start: 2005
  3. ALENDRONATE SODIUM. [Suspect]
     Active Substance: ALENDRONATE SODIUM
     Indication: PRODUCT USED FOR UNKNOWN INDICATION
     Dosage: UNK, UNKNOWN
     Route: 048

REACTIONS (14)
  - Rotator cuff syndrome [Unknown]
  - Seizure [Unknown]
  - Femoral neck fracture [Unknown]
  - Gastrointestinal disorder [Unknown]
  - Osteoarthritis [Unknown]
  - Scoliosis [Unknown]
  - Peripheral arterial occlusive disease [Unknown]
  - Hypertension [Unknown]
  - Osteoarthritis [Unknown]
  - Thrombosis [Unknown]
  - Blood cholesterol increased [Unknown]
  - Exostosis [Unknown]
  - Stress cardiomyopathy [Unknown]
  - Anaemia postoperative [Recovered/Resolved]

NARRATIVE: CASE EVENT DATE: 2005
